FAERS Safety Report 9132456 (Version 1)
Quarter: 2013Q1

REPORT INFORMATION
  Report Type: Spontaneous
  Country: FR (occurrence: FR)
  Receive Date: 20130301
  Receipt Date: 20130301
  Transmission Date: 20140127
  Serious: Yes (Death)
  Sender: FDA-Public Use
  Company Number: FR-ROCHE-1196612

PATIENT
  Sex: Female

DRUGS (3)
  1. PEGASYS [Suspect]
     Indication: HEPATITIS C
     Route: 058
     Dates: start: 20121001, end: 20121125
  2. REBETOL [Suspect]
     Indication: HEPATITIS C
     Route: 048
     Dates: start: 20121001, end: 20130125
  3. SOFOSBUVIR [Concomitant]
     Route: 065
     Dates: start: 20121205

REACTIONS (2)
  - Ascites [Fatal]
  - Hepatic encephalopathy [Fatal]
